FAERS Safety Report 4359159-7 (Version None)
Quarter: 2004Q2

REPORT INFORMATION
  Report Type: 
  Country: None (occurrence: None)
  Receive Date: 20040512
  Receipt Date: 20040428
  Transmission Date: 20050107
  Serious: Yes (Death, Other)
  Sender: FDA-Public Use
  Company Number: USA040466302

PATIENT
  Age: 65 Year
  Sex: Male

DRUGS (2)
  1. HUMULIN N [Suspect]
  2. NOVOLIN R [Concomitant]

REACTIONS (1)
  - CEREBROVASCULAR ACCIDENT [None]
